FAERS Safety Report 8591694-8 (Version None)
Quarter: 2012Q3

REPORT INFORMATION
  Report Type: 
  Country: None (occurrence: None)
  Receive Date: 20120814
  Receipt Date: 20120805
  Transmission Date: 20120928
  Serious: Yes (Hospitalization)
  Sender: FDA-Public Use
  Company Number: JP-ELI_LILLY_AND_COMPANY-JP201206009012

PATIENT
  Age: 75 Year
  Sex: Female

DRUGS (1)
  1. FORTEO [Suspect]
     Dosage: UNK
     Route: 058
     Dates: start: 20120621, end: 20120717

REACTIONS (5)
  - CHOLELITHIASIS [None]
  - PALPITATIONS [None]
  - HEADACHE [None]
  - MUSCLE SPASMS [None]
  - DIZZINESS [None]
